FAERS Safety Report 5486824-0 (Version None)
Quarter: 2007Q4

REPORT INFORMATION
  Report Type: 
  Country: None (occurrence: None)
  Receive Date: 20071012
  Receipt Date: 20071012
  Transmission Date: 20080405
  Serious: Yes (Life-Threatening, Hospitalization)
  Sender: FDA-Public Use
  Company Number: None

PATIENT
  Sex: Male
  Weight: 77.1115 kg

DRUGS (9)
  1. KALETRA [Suspect]
     Indication: ACQUIRED IMMUNODEFICIENCY SYNDROME
     Dosage: 2 CAPSULES TWICE DAILY PO
     Route: 048
     Dates: start: 20020101
  2. ZERIT [Concomitant]
  3. EPIVIR [Concomitant]
  4. ACYCLOVIR [Concomitant]
  5. FLUCONAZOLE [Concomitant]
  6. SEPTRA [Concomitant]
  7. AVINZA/MS CONTIN [Concomitant]
  8. CELEBREX [Concomitant]
  9. FACTOR VIII [Concomitant]

REACTIONS (2)
  - HAEMORRHAGE INTRACRANIAL [None]
  - SUBDURAL HAEMORRHAGE [None]
